FAERS Safety Report 17803258 (Version 2)
Quarter: 2020Q2

REPORT INFORMATION
  Report Type: Spontaneous
  Country: US (occurrence: US)
  Receive Date: 20200519
  Receipt Date: 20200626
  Transmission Date: 20200714
  Serious: No
  Sender: FDA-Public Use
  Company Number: US-JNJFOC-20200514728

PATIENT
  Sex: Male
  Weight: 59.93 kg

DRUGS (1)
  1. ZYRTEC [Suspect]
     Active Substance: CETIRIZINE HYDROCHLORIDE
     Indication: HYPERSENSITIVITY
     Dosage: 1 TABLET ONCE A DAY, LAST ADMIN DATE:  12/MAY/2020
     Route: 048
     Dates: start: 20200420

REACTIONS (1)
  - Drug ineffective [Unknown]

NARRATIVE: CASE EVENT DATE: 2020
